FAERS Safety Report 16853711 (Version 7)
Quarter: 2023Q4

REPORT INFORMATION
  Report Type: Spontaneous
  Country: JP (occurrence: JP)
  Receive Date: 20190926
  Receipt Date: 20231115
  Transmission Date: 20240109
  Serious: Yes (Life-Threatening, Hospitalization, Other)
  Sender: FDA-Public Use
  Company Number: JP-ALEXION PHARMACEUTICALS INC-A201913952

PATIENT
  Age: 70 Year
  Sex: Male
  Weight: 54 kg

DRUGS (18)
  1. SOLIRIS [Suspect]
     Active Substance: ECULIZUMAB
     Indication: Paroxysmal nocturnal haemoglobinuria
     Dosage: 600 MG, QW
     Route: 042
     Dates: start: 20101105, end: 20101203
  2. SOLIRIS [Suspect]
     Active Substance: ECULIZUMAB
     Dosage: 900 MG, Q2W
     Route: 042
     Dates: start: 20101217, end: 20190828
  3. SOLIRIS [Suspect]
     Active Substance: ECULIZUMAB
     Dosage: UNK
     Route: 042
     Dates: end: 20191120
  4. AMITIZA [Concomitant]
     Active Substance: LUBIPROSTONE
     Indication: Constipation
     Dosage: 2 DF, DAILY
     Route: 065
     Dates: start: 20180709
  5. MAGNESIUM OXIDE [Concomitant]
     Active Substance: MAGNESIUM OXIDE
     Indication: Constipation
     Dosage: 330 MG, TID
     Route: 048
     Dates: start: 20190701
  6. LANSOPRAZOLE [Concomitant]
     Active Substance: LANSOPRAZOLE
     Indication: Gastrooesophageal reflux disease
     Dosage: 15 MG, QD
     Route: 048
     Dates: start: 20090219
  7. PROCATEROL HYDROCHLORIDE [Concomitant]
     Active Substance: PROCATEROL HYDROCHLORIDE
     Indication: Product used for unknown indication
     Dosage: 10 ?G, PRN
     Dates: start: 20170214
  8. VICCILLIN                          /00000501/ [Concomitant]
     Indication: Infection prophylaxis
     Dosage: 1 G, DAILY
     Route: 065
     Dates: start: 20190829, end: 20190829
  9. LEVOFLOXACIN HEMIHYDRATE [Concomitant]
     Active Substance: LEVOFLOXACIN
     Indication: Infection prophylaxis
     Dosage: 500 MG, DAILY
     Route: 065
     Dates: start: 20190830, end: 20190904
  10. PREDNISOLONE [Concomitant]
     Active Substance: PREDNISOLONE
     Indication: Paroxysmal nocturnal haemoglobinuria
     Dosage: 2 MG,DAILY
     Route: 065
     Dates: start: 20110426, end: 20190630
  11. PREDNISOLONE [Concomitant]
     Active Substance: PREDNISOLONE
     Dosage: 5 MG, QD
     Route: 048
     Dates: start: 20190701
  12. SHAKUYAKUKANZOTO [Concomitant]
     Active Substance: HERBALS
     Indication: Muscle spasms
     Dosage: 2.5 G, PRN
     Route: 048
     Dates: start: 20210121
  13. LECICARBON                         /00739901/ [Concomitant]
     Indication: Constipation
     Dosage: 1 DF, PRN
     Route: 054
     Dates: start: 20210126
  14. FLUTICASONE FUROATE\VILANTEROL TRIFENATATE [Concomitant]
     Active Substance: FLUTICASONE FUROATE\VILANTEROL TRIFENATATE
     Indication: Asthma
     Dosage: ELLIPTA, QD
     Dates: start: 20191106
  15. HERBALS [Concomitant]
     Active Substance: HERBALS
     Indication: Constipation
     Dosage: 2.5 MG, TID
     Route: 048
     Dates: start: 20201021, end: 20201118
  16. CEFACLOR [Concomitant]
     Active Substance: CEFACLOR
     Indication: Limb injury
     Dosage: 250 MG, TID
     Route: 048
     Dates: start: 20201118, end: 20201123
  17. ABRAXANE [Concomitant]
     Active Substance: PACLITAXEL
     Indication: Non-small cell lung cancer
     Dosage: 175 MG, QD
     Route: 065
     Dates: start: 20210120, end: 20210120
  18. DEXAMETHASONE SODIUM PHOSPHATE [Concomitant]
     Active Substance: DEXAMETHASONE SODIUM PHOSPHATE
     Indication: Non-small cell lung cancer
     Dosage: 3.3 MG, SINGLE
     Route: 051
     Dates: start: 20210120, end: 20210120

REACTIONS (3)
  - Non-small cell lung cancer [Not Recovered/Not Resolved]
  - Pneumonia [Recovered/Resolved]
  - Bladder cancer [Recovered/Resolved]

NARRATIVE: CASE EVENT DATE: 20190904
